FAERS Safety Report 12438017 (Version 1)
Quarter: 2016Q2

REPORT INFORMATION
  Report Type: Spontaneous
  Country: US (occurrence: US)
  Receive Date: 20160606
  Receipt Date: 20160606
  Transmission Date: 20160815
  Serious: No
  Sender: FDA-Public Use
  Company Number: US-BAYER-2016-105780

PATIENT
  Age: 5 Year
  Sex: Female
  Weight: 20.68 kg

DRUGS (2)
  1. CLARITIN [Suspect]
     Active Substance: LORATADINE
     Indication: SEASONAL ALLERGY
     Dosage: 1 DF, QD
     Route: 048
     Dates: start: 2014
  2. METHYLPHENIDATE. [Concomitant]
     Active Substance: METHYLPHENIDATE
     Dosage: 2 ML, QD
     Route: 048

REACTIONS (2)
  - Increased tendency to bruise [None]
  - Attention deficit/hyperactivity disorder [None]
